FAERS Safety Report 9570694 (Version 1)
Quarter: 2013Q4

REPORT INFORMATION
  Report Type: Spontaneous
  Country: US (occurrence: US)
  Receive Date: 20131001
  Receipt Date: 20131001
  Transmission Date: 20140711
  Serious: No
  Sender: FDA-Public Use
  Company Number: US-BIOGENIDEC-2013BI092613

PATIENT
  Age: 28 Year
  Sex: 0

DRUGS (1)
  1. TYSABRI [Suspect]
     Indication: MULTIPLE SCLEROSIS
     Route: 042
     Dates: start: 20130909

REACTIONS (3)
  - Malaise [Recovered/Resolved]
  - Nasopharyngitis [Recovered/Resolved]
  - Fatigue [Recovered/Resolved]
